FAERS Safety Report 6501378-5 (Version None)
Quarter: 2009Q4

REPORT INFORMATION
  Report Type: 
  Country: None (occurrence: None)
  Receive Date: 20091216
  Receipt Date: 20091208
  Transmission Date: 20100525
  Serious: Yes (Hospitalization, Other)
  Sender: FDA-Public Use
  Company Number: US-BAYER-200933385NA

PATIENT
  Age: 31 Year
  Sex: Female
  Weight: 60 kg

DRUGS (3)
  1. MIRENA [Suspect]
     Indication: CONTRACEPTION
     Route: 015
     Dates: start: 20090810, end: 20090819
  2. COUMADIN [Concomitant]
     Indication: PULMONARY EMBOLISM
  3. WELLBUTRIN [Concomitant]
     Route: 048

REACTIONS (2)
  - PYREXIA [None]
  - UTERINE INFECTION [None]
